FAERS Safety Report 17116877 (Version 1)
Quarter: 2019Q4

REPORT INFORMATION
  Report Type: Spontaneous
  Country: IT (occurrence: IT)
  Receive Date: 20191205
  Receipt Date: 20191205
  Transmission Date: 20200122
  Serious: Yes (Hospitalization)
  Sender: FDA-Public Use
  Company Number: IT-MYLANLABS-2019M1118765

PATIENT
  Age: 51 Year
  Sex: Female

DRUGS (4)
  1. PRITORPLUS [Concomitant]
     Active Substance: HYDROCHLOROTHIAZIDE\TELMISARTAN
     Indication: HYPERTENSION
     Dosage: UNK
     Route: 048
  2. APIDRA [Concomitant]
     Active Substance: INSULIN GLULISINE
     Dosage: UNK
  3. PANTOPRAZOLO MYLAN GENERICS [Suspect]
     Active Substance: PANTOPRAZOLE SODIUM
     Indication: ABDOMINAL PAIN UPPER
     Dosage: 20 MILLIGRAM, QD
     Route: 048
     Dates: start: 20190712, end: 20190713
  4. LANTUS [Concomitant]
     Active Substance: INSULIN GLARGINE
     Indication: DIABETES MELLITUS
     Dosage: UNK

REACTIONS (4)
  - Pruritus [Recovering/Resolving]
  - Flushing [Recovering/Resolving]
  - Tremor [Recovering/Resolving]
  - Laryngeal oedema [Recovering/Resolving]

NARRATIVE: CASE EVENT DATE: 20190712
